FAERS Safety Report 6209722-3 (Version None)
Quarter: 2009Q2

REPORT INFORMATION
  Report Type: 
  Country: None (occurrence: None)
  Receive Date: 20090601
  Receipt Date: 20090526
  Transmission Date: 20091009
  Serious: Yes (Hospitalization)
  Sender: FDA-Public Use
  Company Number: FR-JNJFOC-20090506403

PATIENT
  Sex: Female

DRUGS (10)
  1. DURAGESIC-100 [Suspect]
     Indication: PAIN
     Route: 062
     Dates: start: 20090217, end: 20090314
  2. NORSET [Interacting]
     Indication: DEPRESSION
     Route: 048
     Dates: start: 20090310, end: 20090314
  3. DI-ANTALVIC [Interacting]
     Indication: PAIN
     Route: 048
     Dates: start: 20090127, end: 20090314
  4. RIVOTRIL [Interacting]
     Indication: PAIN
     Route: 048
  5. GLUCOR [Concomitant]
     Indication: TYPE 2 DIABETES MELLITUS
     Route: 048
  6. HEMIGOXINE NATIVELLE [Concomitant]
     Indication: ARRHYTHMIA
     Route: 048
  7. GLUCOPHAGE [Concomitant]
     Indication: TYPE 2 DIABETES MELLITUS
     Route: 048
     Dates: start: 20081014, end: 20090319
  8. PLAVIX [Concomitant]
     Route: 048
  9. ALDACTONE [Concomitant]
     Route: 048
     Dates: start: 20081008, end: 20090314
  10. PYOSTACINE [Concomitant]
     Route: 048
     Dates: start: 20090310, end: 20090316

REACTIONS (3)
  - CONFUSIONAL STATE [None]
  - DRUG INTERACTION [None]
  - MORBID THOUGHTS [None]
